FAERS Safety Report 9050402 (Version 1)
Quarter: 2013Q1

REPORT INFORMATION
  Report Type: Spontaneous
  Country: US (occurrence: US)
  Receive Date: 20130205
  Receipt Date: 20130205
  Transmission Date: 20140127
  Serious: No
  Sender: FDA-Public Use
  Company Number: US-ASTRAZENECA-2012SE20048

PATIENT
  Age: 66 Year
  Sex: Female

DRUGS (17)
  1. NEXIUM [Suspect]
     Route: 048
  2. CRESTOR [Suspect]
     Route: 048
  3. MULTIVITAMINS [Concomitant]
     Indication: VITAMIN SUPPLEMENTATION
  4. SYNTHROID [Concomitant]
  5. ADULT ASPIRIN EC [Concomitant]
     Indication: CARDIAC DISORDER
  6. ZETIA [Concomitant]
  7. KLOR-CON [Concomitant]
  8. TED KNEE LENGTH/L-REGULAR MISC [Concomitant]
     Indication: WOUND TREATMENT
  9. ALPRAZOLAM [Concomitant]
     Indication: ANXIETY
  10. MECLIZINE HCL [Concomitant]
     Indication: DIZZINESS
  11. LIPO-FLAVONOID PLUS [Concomitant]
     Indication: TINNITUS
  12. HYDROCORTISONE 1% CREA [Concomitant]
  13. MIRALAX [Concomitant]
     Indication: CONSTIPATION
  14. AUTOMATIC BLOOD PRESSURE CUFF [Concomitant]
     Indication: HYPERTENSION
  15. NEURONTIN [Concomitant]
  16. VENTOLIN HFA [Concomitant]
     Indication: COUGH
  17. VENTOLIN HFA [Concomitant]
     Indication: DYSPNOEA

REACTIONS (3)
  - Drug hypersensitivity [Unknown]
  - Malaise [Unknown]
  - Influenza [Unknown]
